FAERS Safety Report 9707522 (Version 2)
Quarter: 2015Q1

REPORT INFORMATION
  Report Type: Spontaneous
  Country: US (occurrence: US)
  Receive Date: 20131125
  Receipt Date: 20150206
  Transmission Date: 20150721
  Serious: No
  Sender: FDA-Public Use
  Company Number: US-009507513-1311USA007541

PATIENT
  Age: 52 Year
  Sex: Female
  Weight: 56.69 kg

DRUGS (2)
  1. CLARITIN [Suspect]
     Active Substance: LORATADINE
     Indication: MOUTH SWELLING
     Dosage: 10 MG, Q12H
     Route: 048
     Dates: start: 20120711, end: 20120726
  2. CLARITIN [Suspect]
     Active Substance: LORATADINE
     Dosage: UNK UNK, UNKNOWN

REACTIONS (4)
  - Overdose [Unknown]
  - Headache [Unknown]
  - Off label use [Unknown]
  - Inappropriate schedule of drug administration [Unknown]

NARRATIVE: CASE EVENT DATE: 201207
